FAERS Safety Report 5280393-6 (Version None)
Quarter: 2007Q1

REPORT INFORMATION
  Report Type: 
  Country: None (occurrence: None)
  Receive Date: 20070326
  Receipt Date: 20070326
  Transmission Date: 20070707
  Serious: Yes (Other)
  Sender: FDA-Public Use
  Company Number: None

PATIENT
  Sex: Female
  Weight: 79.3795 kg

DRUGS (2)
  1. OXYCODONE CONTROLLED RELEASE 20MG AND 10MG -30MG TOTAL- TEVA USA PHARM [Suspect]
     Indication: BACK PAIN
     Dosage: 30MG EVERY 8 HOURS PO
     Route: 048
     Dates: start: 20070312, end: 20070323
  2. OXYCODONE CONTROLLED RELEASE 20MG AND 10MG -30MG TOTAL- TEVA USA PHARM [Suspect]
     Indication: SPINAL FUSION SURGERY
     Dosage: 30MG EVERY 8 HOURS PO
     Route: 048
     Dates: start: 20070312, end: 20070323

REACTIONS (4)
  - ACTIVITIES OF DAILY LIVING IMPAIRED [None]
  - DRUG INEFFECTIVE [None]
  - PAIN [None]
  - PHARMACEUTICAL PRODUCT COMPLAINT [None]
